FAERS Safety Report 6654492-8 (Version None)
Quarter: 2010Q1

REPORT INFORMATION
  Report Type: 
  Country: None (occurrence: None)
  Receive Date: 20100326
  Receipt Date: 20100315
  Transmission Date: 20100710
  Serious: Yes (Death, Other)
  Sender: FDA-Public Use
  Company Number: US-PFIZER INC-2010034081

PATIENT
  Sex: Female

DRUGS (1)
  1. DIABINESE [Suspect]
     Indication: DIABETES MELLITUS
     Dosage: UNK
     Dates: end: 19890101

REACTIONS (2)
  - DEATH [None]
  - OSTEOPOROSIS [None]
